FAERS Safety Report 13358606 (Version 2)
Quarter: 2017Q1

REPORT INFORMATION
  Report Type: Spontaneous
  Country: US (occurrence: US)
  Receive Date: 20170322
  Receipt Date: 20170328
  Transmission Date: 20170429
  Serious: Yes (Death)
  Sender: FDA-Public Use
  Company Number: US-FRESENIUS MEDICAL CARE RENAL THERAPIES GROUP-FMC-1703-000422

PATIENT
  Sex: Male
  Weight: 140.5 kg

DRUGS (22)
  1. HYDROCODONE BITARTRATE AND ACETAMINOPHEN [Concomitant]
     Active Substance: ACETAMINOPHEN\HYDROCODONE BITARTRATE
  2. CALCITRIOL. [Concomitant]
     Active Substance: CALCITRIOL
  3. ELIQUIS [Concomitant]
     Active Substance: APIXABAN
  4. MIDODRINE [Concomitant]
     Active Substance: MIDODRINE
  5. TRADJENTA [Concomitant]
     Active Substance: LINAGLIPTIN
  6. COLACE [Concomitant]
     Active Substance: DOCUSATE SODIUM
  7. LANTUS [Concomitant]
     Active Substance: INSULIN GLARGINE
  8. PROPAFENONE. [Concomitant]
     Active Substance: PROPAFENONE
  9. DELFLEX WITH DEXTROSE 2.5% LOW MAGNESIUM LOW CALCIUM [Suspect]
     Active Substance: CALCIUM CHLORIDE\DEXTROSE\MAGNESIUM CHLORIDE\SODIUM CHLORIDE\SODIUM LACTATE
     Indication: END STAGE RENAL DISEASE
     Route: 033
  10. PRAVASTATIN. [Concomitant]
     Active Substance: PRAVASTATIN
  11. CYCLOBENZAPRINE [Concomitant]
     Active Substance: CYCLOBENZAPRINE
  12. LYRICA [Concomitant]
     Active Substance: PREGABALIN
  13. MIRALAX [Concomitant]
     Active Substance: POLYETHYLENE GLYCOL 3350
  14. FLOMAX [Concomitant]
     Active Substance: TAMSULOSIN HYDROCHLORIDE
  15. RENA-VITE [Concomitant]
     Active Substance: ASCORBIC ACID\BIOTIN\CALCIUM PANTOTHENATE\CYANOCOBALAMIN\FOLIC ACID\NIACINAMIDE\PYRIDOXINE HYDROCHLORIDE\RIBOFLAVIN\THIAMINE MONONITRATE
  16. RENVELA [Concomitant]
     Active Substance: SEVELAMER CARBONATE
  17. TRAMADOL. [Concomitant]
     Active Substance: TRAMADOL
  18. DEMADEX [Concomitant]
     Active Substance: TORSEMIDE
  19. FERROUS SULFATE. [Concomitant]
     Active Substance: FERROUS SULFATE
  20. LORATADINE. [Concomitant]
     Active Substance: LORATADINE
  21. NEXIUM [Concomitant]
     Active Substance: ESOMEPRAZOLE MAGNESIUM
  22. VITAMIN D2 [Concomitant]
     Active Substance: ERGOCALCIFEROL

REACTIONS (1)
  - Cardiac arrest [Fatal]
